FAERS Safety Report 9382884 (Version 1)
Quarter: 2013Q3

REPORT INFORMATION
  Report Type: Report from Study
  Country: US (occurrence: US)
  Receive Date: 20130703
  Receipt Date: 20130703
  Transmission Date: 20140515
  Serious: Yes (Hospitalization)
  Sender: FDA-Public Use
  Company Number: US-ABBOTT-13P-163-1091139-00

PATIENT
  Age: 62 Year
  Sex: Male
  Weight: 148.46 kg

DRUGS (16)
  1. HUMIRA [Suspect]
     Indication: CROHN^S DISEASE
     Dosage: SECOND PART OF LOADING DOSE
     Dates: start: 20130301, end: 20130325
  2. HUMIRA [Suspect]
  3. MORPHINE [Concomitant]
     Indication: NECK PAIN
     Dosage: PUMP, 3.6 MG DAILY
  4. GABAPENTIN [Concomitant]
     Indication: NEUROPATHY PERIPHERAL
  5. PENTASA [Concomitant]
     Indication: CROHN^S DISEASE
     Dosage: 500MG (2)  TABS BID
     Route: 048
  6. NEXIUM [Concomitant]
     Indication: GASTROOESOPHAGEAL REFLUX DISEASE
  7. METOLAZONE [Concomitant]
     Indication: DIURETIC THERAPY
  8. PROMETHAZINE [Concomitant]
     Indication: NAUSEA
  9. SPIRONOLACTONE [Concomitant]
     Indication: DIURETIC THERAPY
  10. LISINOPRIL [Concomitant]
     Indication: BLOOD PRESSURE
     Dosage: 10 MG IN MORNING AND 2.5 MG IN AFTERNOON
  11. FLOMAX [Concomitant]
     Indication: URINE FLOW DECREASED
  12. TRAZODONE [Concomitant]
     Indication: ANXIETY
     Dosage: AT BEDTIME
  13. ALBUTEROL [Concomitant]
     Indication: DYSPNOEA
     Dosage: PUFFER EVERY FOUR HOURS
  14. TRIAMCINOLONE [Concomitant]
     Indication: MOUTH ULCERATION
     Dosage: PASTE
  15. TRIAMCINOLONE [Concomitant]
     Indication: CROHN^S DISEASE
  16. FLEXERIL [Concomitant]
     Indication: NECK PAIN

REACTIONS (3)
  - Epistaxis [Recovering/Resolving]
  - Pneumonia [Recovered/Resolved]
  - Local swelling [Recovering/Resolving]
